FAERS Safety Report 6983795-2 (Version None)
Quarter: 2010Q3

REPORT INFORMATION
  Report Type: 
  Country: None (occurrence: None)
  Receive Date: 20100914
  Receipt Date: 20090206
  Transmission Date: 20110219
  Serious: No
  Sender: FDA-Public Use
  Company Number: US-WYE-H08128609

PATIENT
  Age: 31 Year
  Sex: Female
  Weight: 84.44 kg

DRUGS (10)
  1. ADVIL LIQUI-GELS [Suspect]
     Indication: ARTHRALGIA
     Route: 048
     Dates: start: 20090101, end: 20090205
  2. LANTUS [Concomitant]
  3. VITAMIN D [Concomitant]
  4. SYMLIN [Concomitant]
  5. SYNTHROID [Concomitant]
  6. METHOTREXATE [Concomitant]
  7. LISINOPRIL [Concomitant]
  8. PRILOSEC [Concomitant]
  9. NOVOLOG [Concomitant]
  10. FOLIC ACID [Concomitant]

REACTIONS (2)
  - CONDITION AGGRAVATED [None]
  - DIABETES MELLITUS [None]
